FAERS Safety Report 5504471-9 (Version None)
Quarter: 2007Q4

REPORT INFORMATION
  Report Type: 
  Country: None (occurrence: None)
  Receive Date: 20071031
  Receipt Date: 20071024
  Transmission Date: 20080405
  Serious: Yes (Hospitalization)
  Sender: FDA-Public Use
  Company Number: 13954177

PATIENT
  Age: 37 Year
  Sex: Female

DRUGS (3)
  1. NALTREXONE HYDROCHLORIDE [Suspect]
     Dosage: 25 MILLIGRAM ORAL
     Route: 048
     Dates: start: 20071008, end: 20071008
  2. AMITRIPTYLINE HCL [Concomitant]
  3. PROPRANOLOL HYDROCHLORIDE [Concomitant]

REACTIONS (1)
  - HYPERSENSITIVITY [None]
